FAERS Safety Report 6235019-1 (Version None)
Quarter: 2009Q2

REPORT INFORMATION
  Report Type: 
  Country: None (occurrence: None)
  Receive Date: 20090618
  Receipt Date: 20090605
  Transmission Date: 20091009
  Serious: Yes (Death)
  Sender: FDA-Public Use
  Company Number: GB-ELI_LILLY_AND_COMPANY-GB200903002836

PATIENT
  Sex: Female

DRUGS (2)
  1. CYMBALTA [Suspect]
     Dosage: UNKNOWN SUSPECTED OVERDOSE WITH 60 MG CYMBALTA CAPSULES
     Route: 048
     Dates: start: 20060801
  2. RISPERIDONE [Concomitant]
     Dosage: 3 MG, DAILY (1/D)
     Route: 048
     Dates: start: 20060801

REACTIONS (2)
  - COMPLETED SUICIDE [None]
  - OVERDOSE [None]
